FAERS Safety Report 7232635-5 (Version None)
Quarter: 2011Q1

REPORT INFORMATION
  Report Type: 
  Country: None (occurrence: None)
  Receive Date: 20110107
  Receipt Date: 20101227
  Transmission Date: 20110831
  Serious: Yes (Other)
  Sender: FDA-Public Use
  Company Number: JP-1184248

PATIENT
  Age: 75 Year
  Sex: Female

DRUGS (8)
  1. ADALAT 1 (NIFEDIPINE) [Concomitant]
  2. DILTIAZEM HYDROCHLORIDE [Concomitant]
  3. ASPARA-CA (ASPARTATE CALCIIUM) [Concomitant]
  4. LIVALO [Concomitant]
  5. TRAVATAN Z [Suspect]
     Indication: NORMAL TENSION GLAUCOMA
     Dosage: 1 GTT QD OU OPHTHALMIC
     Route: 047
     Dates: start: 20101101, end: 20101104
  6. FAMOTIDINE [Concomitant]
  7. SELBEX (TEPRENONE) [Concomitant]
  8. ROCORNAL (TRAPIDIL) [Concomitant]

REACTIONS (4)
  - ARRHYTHMIA [None]
  - MALAISE [None]
  - EYE PAIN [None]
  - OCULAR HYPERAEMIA [None]
